FAERS Safety Report 8192481 (Version 10)
Quarter: 2012Q4

REPORT INFORMATION
  Report Type: 
  Country: US (occurrence: US)
  Receive Date: 20111020
  Receipt Date: 20121003
  Transmission Date: 20130627
  Serious: Yes (Hospitalization, Other)
  Sender: FDA-Public Use
  Company Number: US-MERCK-1110USA02430

PATIENT

DRUGS (21)
  1. FOSAMAX [Suspect]
     Indication: OSTEOPENIA
     Dosage: 10 mg, UNK
     Route: 048
     Dates: start: 199609, end: 20010830
  2. FOSAMAX [Suspect]
     Dosage: 70 mg, UNK
     Route: 048
     Dates: start: 200107, end: 200812
  3. RECLAST [Suspect]
     Indication: OSTEOPENIA
     Dosage: 35 ml, UNK
     Route: 042
     Dates: start: 20090610, end: 20100610
  4. FOSAMAX [Suspect]
     Route: 048
  5. CALCIUM (UNSPECIFIED) [Concomitant]
     Indication: OSTEOPENIA
     Dosage: 1800 mg, qd
     Dates: start: 1990, end: 2010
  6. HORMONES (UNSPECIFIED) [Concomitant]
     Dates: start: 1994, end: 2001
  7. DARVON [Concomitant]
  8. LORAZEPAM [Concomitant]
  9. LIORAM [Concomitant]
  10. IBUPROFEN [Concomitant]
  11. NAPROXEN [Concomitant]
  12. ULTRAM [Concomitant]
  13. HYDROCODONE [Concomitant]
  14. OXYCODONE [Concomitant]
  15. FENTANYL [Concomitant]
  16. METHADONE HYDROCHLORIDE [Concomitant]
  17. SOMA [Concomitant]
  18. METAXALONE [Concomitant]
  19. LIDODERM [Concomitant]
  20. BOTOX [Concomitant]
  21. MK-0130 [Concomitant]

REACTIONS (72)
  - Fracture nonunion [Unknown]
  - Plasma cell myeloma [Unknown]
  - Device failure [Unknown]
  - Fall [Unknown]
  - Endometrial adenocarcinoma [Unknown]
  - Osteoarthritis [Unknown]
  - Nephrolithiasis [Unknown]
  - Calculus ureteric [Unknown]
  - Nephrolithiasis [Unknown]
  - Multiple allergies [Unknown]
  - Femur fracture [Unknown]
  - Nausea [Unknown]
  - Scoliosis [Unknown]
  - Type V hyperlipidaemia [Unknown]
  - Mass [Unknown]
  - Bursitis [Not Recovered/Not Resolved]
  - Low turnover osteopathy [Unknown]
  - Intervertebral disc degeneration [Not Recovered/Not Resolved]
  - Hypercholesterolaemia [Not Recovered/Not Resolved]
  - Pain [Unknown]
  - Hypertension [Not Recovered/Not Resolved]
  - Uterine polyp [Unknown]
  - Postmenopausal haemorrhage [Unknown]
  - Uterine haemorrhage [Unknown]
  - Bunion [Unknown]
  - Insomnia [Unknown]
  - Cataract [Unknown]
  - Ankle fracture [Unknown]
  - Intervertebral disc protrusion [Unknown]
  - Nephrolithiasis [Unknown]
  - Anal sphincter atony [Unknown]
  - Colitis [Unknown]
  - Hypercalcaemia [Unknown]
  - Spinal osteoarthritis [Unknown]
  - Monoclonal gammopathy [Unknown]
  - Spinal compression fracture [Unknown]
  - Contraindication to medical treatment [Unknown]
  - Multiple fractures [Unknown]
  - Pneumonia [Unknown]
  - Bronchitis [Unknown]
  - Migraine [Unknown]
  - Urinary tract infection [Unknown]
  - Sciatica [Not Recovered/Not Resolved]
  - Depression [Unknown]
  - Spinal osteoarthritis [Unknown]
  - Muscular weakness [Unknown]
  - Gait disturbance [Unknown]
  - Tendonitis [Unknown]
  - Tenosynovitis stenosans [Unknown]
  - Fatigue [Unknown]
  - Unevaluable event [Unknown]
  - Temperature intolerance [Unknown]
  - Nasopharyngitis [Unknown]
  - Osteoporosis [Unknown]
  - Large intestine polyp [Unknown]
  - Cough [Not Recovered/Not Resolved]
  - Hydronephrosis [Unknown]
  - Blood glucose abnormal [Unknown]
  - Change of bowel habit [Unknown]
  - Faecal incontinence [Unknown]
  - Mastocytic enterocolitis [Unknown]
  - Diverticulum [Unknown]
  - Lactose intolerance [Unknown]
  - Small intestinal bacterial overgrowth [Unknown]
  - Anxiety [Unknown]
  - Oedema peripheral [Unknown]
  - Pain in extremity [Unknown]
  - Diarrhoea [Unknown]
  - Frequent bowel movements [Unknown]
  - Abdominal pain [Recovering/Resolving]
  - Neck pain [Unknown]
  - Headache [Unknown]
